FAERS Safety Report 4613181-1 (Version None)
Quarter: 2005Q1

REPORT INFORMATION
  Report Type: 
  Country: None (occurrence: None)
  Receive Date: 20050316
  Receipt Date: 20050303
  Transmission Date: 20050727
  Serious: Yes (Hospitalization, Other)
  Sender: FDA-Public Use
  Company Number: 2005040577

PATIENT
  Age: 69 Year
  Sex: Male
  Weight: 88.4514 kg

DRUGS (4)
  1. NORVASC [Suspect]
     Indication: HYPERTENSION
     Dosage: 5 MG (5 MG, QD), ORAL
     Route: 048
     Dates: start: 20041212, end: 20041215
  2. CALCIUM (CALCIUM) [Concomitant]
  3. ASCORBIC ACID [Concomitant]
  4. DECONGESTANTS AND ANTIALLERGIES (DECONGESTANTS AND ANTIALLERGICS) [Concomitant]

REACTIONS (1)
  - CEREBROVASCULAR ACCIDENT [None]
